FAERS Safety Report 7675493-7 (Version None)
Quarter: 2011Q3

REPORT INFORMATION
  Report Type: 
  Country: None (occurrence: None)
  Receive Date: 20110810
  Receipt Date: 20110809
  Transmission Date: 20111222
  Serious: Yes (Other)
  Sender: FDA-Public Use
  Company Number: US-ABBOTT-11P-163-0837247-00

PATIENT
  Sex: Female
  Weight: 58.112 kg

DRUGS (7)
  1. CALCIUM CARBONATE [Concomitant]
     Indication: MINERAL SUPPLEMENTATION
  2. LORTAB [Concomitant]
     Indication: PRODUCT USED FOR UNKNOWN INDICATION
  3. HUMIRA [Suspect]
     Indication: CROHN'S DISEASE
     Route: 058
     Dates: start: 20100901, end: 20110701
  4. BONIVA [Concomitant]
     Indication: OSTEOPOROSIS
  5. EFFEXOR [Concomitant]
     Indication: DEPRESSION
  6. MULTI-VITAMINS [Concomitant]
     Indication: VITAMIN SUPPLEMENTATION
  7. ZETIA [Concomitant]
     Indication: BLOOD CHOLESTEROL INCREASED

REACTIONS (6)
  - ARTHRALGIA [None]
  - UPPER LIMB FRACTURE [None]
  - TENOSYNOVITIS STENOSANS [None]
  - INCORRECT DOSE ADMINISTERED [None]
  - WRIST FRACTURE [None]
  - WRONG TECHNIQUE IN DRUG USAGE PROCESS [None]
